FAERS Safety Report 18761427 (Version 3)
Quarter: 2025Q3

REPORT INFORMATION
  Report Type: Spontaneous
  Country: EU (occurrence: EU)
  Receive Date: 20210120
  Receipt Date: 20250707
  Transmission Date: 20251021
  Serious: Yes (Life-Threatening, Hospitalization, Other)
  Sender: AUROBINDO
  Company Number: EU-STADA-215159

PATIENT
  Age: 48 Year
  Sex: Male
  Weight: 172 kg

DRUGS (9)
  1. IBUPROFEN [Suspect]
     Active Substance: IBUPROFEN
     Indication: Product used for unknown indication
     Route: 048
  2. IBUPROFEN [Suspect]
     Active Substance: IBUPROFEN
     Route: 065
  3. KETOPROFEN [Suspect]
     Active Substance: KETOPROFEN
     Indication: Product used for unknown indication
     Route: 048
  4. KETOPROFEN [Suspect]
     Active Substance: KETOPROFEN
     Route: 065
  5. ACETAMINOPHEN [Suspect]
     Active Substance: ACETAMINOPHEN
     Indication: Product used for unknown indication
     Route: 048
  6. ACETAMINOPHEN [Suspect]
     Active Substance: ACETAMINOPHEN
     Route: 065
  7. COLCHICINE [Suspect]
     Active Substance: COLCHICINE
     Indication: Polyarthritis
     Route: 048
  8. COLCHICINE [Suspect]
     Active Substance: COLCHICINE
     Route: 065
  9. ALLOPURINOL [Concomitant]
     Active Substance: ALLOPURINOL
     Indication: Polyarthritis
     Route: 065

REACTIONS (17)
  - Acute hepatic failure [Recovering/Resolving]
  - Thrombocytopenia [Recovered/Resolved]
  - Renal failure [Recovering/Resolving]
  - Suicide attempt [Recovering/Resolving]
  - Leukopenia [Recovered/Resolved]
  - Respiratory failure [Recovered/Resolved]
  - Metabolic acidosis [Recovered/Resolved]
  - Alopecia [Recovered/Resolved]
  - Vomiting [Recovered/Resolved]
  - Anaemia [Recovered/Resolved]
  - Diarrhoea [Recovered/Resolved]
  - Intentional overdose [Recovering/Resolving]
  - Toxicity to various agents [Recovering/Resolving]
  - Hepatic failure [Recovered/Resolved]
  - Haemodynamic instability [Recovered/Resolved]
  - Neurological decompensation [Recovered/Resolved]
  - Intentional product misuse [Unknown]
